FAERS Safety Report 17191172 (Version 1)
Quarter: 2019Q4

REPORT INFORMATION
  Report Type: Spontaneous
  Country: US (occurrence: US)
  Receive Date: 20191220
  Receipt Date: 20191220
  Transmission Date: 20200122
  Serious: Yes (Disabling)
  Sender: FDA-Public Use
  Company Number: None

PATIENT
  Age: 60 Year
  Sex: Male
  Weight: 78.75 kg

DRUGS (14)
  1. ASPIRIN. [Concomitant]
     Active Substance: ASPIRIN
  2. OMEGA 3 FISH OIL [Concomitant]
     Active Substance: FISH OIL\OMEGA-3 FATTY ACIDS
  3. VITAMIN D3 [Concomitant]
     Active Substance: CHOLECALCIFEROL
  4. AUSTEDO [Suspect]
     Active Substance: DEUTETRABENAZINE
     Indication: TARDIVE DYSKINESIA
     Dosage: ?          QUANTITY:1 CAPSULE(S);?
     Route: 048
     Dates: start: 20190426, end: 20190520
  5. RESVERATROL [Concomitant]
     Active Substance: DIETARY SUPPLEMENT\RESVERATROL
  6. VITAMIN B12 [Concomitant]
     Active Substance: CYANOCOBALAMIN
  7. CONDROITEN [Concomitant]
  8. COENZYME Q 10 [Concomitant]
  9. PROBIOTIC [Concomitant]
     Active Substance: PROBIOTICS NOS
  10. LIPITOR [Concomitant]
     Active Substance: ATORVASTATIN CALCIUM
  11. ZOLOFT [Concomitant]
     Active Substance: SERTRALINE HYDROCHLORIDE
  12. MAGNESIUM [Concomitant]
     Active Substance: MAGNESIUM
  13. VITAMIN C [Concomitant]
     Active Substance: ASCORBIC ACID
  14. GLUCOSAMINE [Concomitant]
     Active Substance: GLUCOSAMINE

REACTIONS (6)
  - Dyspnoea [None]
  - Tic [None]
  - Sinus disorder [None]
  - Neuropathy peripheral [None]
  - Dizziness [None]
  - Tardive dyskinesia [None]

NARRATIVE: CASE EVENT DATE: 20190518
